FAERS Safety Report 11433677 (Version 2)
Quarter: 2015Q3

REPORT INFORMATION
  Report Type: Report from Study
  Country: US (occurrence: US)
  Receive Date: 20150831
  Receipt Date: 20150907
  Transmission Date: 20151125
  Serious: Yes (Other)
  Sender: FDA-Public Use
  Company Number: US-ROCHE-1627898

PATIENT
  Sex: Female

DRUGS (1)
  1. PULMOZYME [Suspect]
     Active Substance: DORNASE ALFA
     Indication: RETT^S DISORDER
     Dosage: ONE VIAL TWICE DAILY
     Route: 055

REACTIONS (2)
  - Aspiration [Unknown]
  - Infection [Recovered/Resolved with Sequelae]
